FAERS Safety Report 11659687 (Version 1)
Quarter: 2015Q4

REPORT INFORMATION
  Report Type: Spontaneous
  Country: CN (occurrence: CN)
  Receive Date: 20151026
  Receipt Date: 20151026
  Transmission Date: 20160304
  Serious: Yes (Other)
  Sender: FDA-Public Use
  Company Number: CN-ROCHE-1650725

PATIENT
  Sex: Female
  Weight: 50 kg

DRUGS (2)
  1. HERCEPTIN [Suspect]
     Active Substance: TRASTUZUMAB
     Indication: LYMPHOMA
     Route: 041
     Dates: start: 20150329, end: 20150329
  2. HERCEPTIN [Suspect]
     Active Substance: TRASTUZUMAB
     Indication: CERVIX CARCINOMA

REACTIONS (1)
  - Bone marrow failure [Recovering/Resolving]
